FAERS Safety Report 23406529 (Version 1)
Quarter: 2024Q1

REPORT INFORMATION
  Report Type: Spontaneous
  Country: FR (occurrence: FR)
  Receive Date: 20240116
  Receipt Date: 20240116
  Transmission Date: 20240410
  Serious: Yes (Other)
  Sender: FDA-Public Use
  Company Number: None

PATIENT
  Age: 67 Year
  Sex: Female
  Weight: 54 kg

DRUGS (3)
  1. EPIRUBICIN [Suspect]
     Active Substance: EPIRUBICIN
     Indication: Triple positive breast cancer
     Dosage: 144 MILLIGRAM, Q21D
     Route: 042
     Dates: start: 20230807, end: 20230828
  2. KEYTRUDA [Suspect]
     Active Substance: PEMBROLIZUMAB
     Indication: Triple positive breast cancer
     Dosage: 200 MILLIGRAM, Q21D
     Route: 042
     Dates: start: 20230516, end: 20230828
  3. CYCLOPHOSPHAMIDE [Suspect]
     Active Substance: CYCLOPHOSPHAMIDE
     Indication: Triple positive breast cancer
     Dosage: 950 MILLIGRAM, Q21D
     Route: 042
     Dates: start: 20230807, end: 20230828

REACTIONS (1)
  - Liver injury [Recovered/Resolved]

NARRATIVE: CASE EVENT DATE: 20230919
